FAERS Safety Report 5185476-7 (Version None)
Quarter: 2006Q4

REPORT INFORMATION
  Report Type: 
  Country: None (occurrence: None)
  Receive Date: 20061220
  Receipt Date: 20060725
  Transmission Date: 20070319
  Serious: No
  Sender: FDA-Public Use
  Company Number: US-GLAXOSMITHKLINE-A0613460A

PATIENT
  Age: 22 Year
  Sex: Female

DRUGS (1)
  1. NICODERM CQ [Suspect]
     Dosage: 21MG PER DAY
     Route: 062
     Dates: start: 20060725, end: 20060725

REACTIONS (7)
  - APPLICATION SITE ERYTHEMA [None]
  - APPLICATION SITE IRRITATION [None]
  - APPLICATION SITE PRURITUS [None]
  - DRUG INEFFECTIVE [None]
  - MALAISE [None]
  - NERVOUSNESS [None]
  - NICOTINE DEPENDENCE [None]
